FAERS Safety Report 6979306-8 (Version None)
Quarter: 2010Q3

REPORT INFORMATION
  Report Type: 
  Country: None (occurrence: None)
  Receive Date: 20100913
  Receipt Date: 20100901
  Transmission Date: 20110219
  Serious: Yes (Hospitalization)
  Sender: FDA-Public Use
  Company Number: CA-ELI_LILLY_AND_COMPANY-CA201009000876

PATIENT
  Age: 87 Year
  Sex: Female

DRUGS (8)
  1. FORTEO [Suspect]
     Indication: OSTEOPOROSIS
     Dosage: 20 UG, DAILY (1/D)
     Dates: start: 20081117
  2. CALCIUM [Concomitant]
  3. VITAMIN D [Concomitant]
  4. ENALAPRIL [Concomitant]
  5. LEVOTHYROXINE [Concomitant]
  6. SENOKOT [Concomitant]
  7. VITAMIN B-12 [Concomitant]
  8. HYDROMORPHONE HCL [Concomitant]

REACTIONS (2)
  - ATRIAL FIBRILLATION [None]
  - INTESTINAL OBSTRUCTION [None]
